FAERS Safety Report 7782607-7 (Version None)
Quarter: 2011Q3

REPORT INFORMATION
  Report Type: 
  Country: None (occurrence: None)
  Receive Date: 20110926
  Receipt Date: 20110914
  Transmission Date: 20111222
  Serious: Yes (Hospitalization, Disabling, Other)
  Sender: FDA-Public Use
  Company Number: 2011MA002870

PATIENT
  Age: 61 Year
  Sex: Male
  Weight: 99.7913 kg

DRUGS (22)
  1. ISOSORBIDE DINITRATE [Concomitant]
  2. ZETIA [Concomitant]
  3. KLOR-CON [Concomitant]
  4. ULTRAM [Concomitant]
  5. CARDIZEM [Concomitant]
  6. ASPIRIN [Concomitant]
  7. SIMVASTATIN [Concomitant]
  8. AXID [Concomitant]
  9. DYAZIDE [Concomitant]
  10. CARTIA XT [Concomitant]
  11. BUSPIRONE [Concomitant]
  12. TRIAMTERINE [Concomitant]
  13. NITROGLYCERIN [Concomitant]
  14. LOPRESSOR [Concomitant]
  15. METOCLOPRAMIDE [Suspect]
     Indication: BARRETT'S OESOPHAGUS
     Dosage: 10 MG;BID
     Dates: start: 20000115, end: 20061129
  16. METOCLOPRAMIDE [Suspect]
     Indication: GASTROOESOPHAGEAL REFLUX DISEASE
     Dosage: 10 MG;BID
     Dates: start: 20000115, end: 20061129
  17. METOPROLOL TARTRATE [Concomitant]
  18. DIGOXIN [Concomitant]
  19. JANTOVEN [Concomitant]
  20. LIORESAL [Concomitant]
  21. TEGRETOL [Concomitant]
  22. ZOCOR [Concomitant]

REACTIONS (42)
  - TRIGGER FINGER [None]
  - PAIN [None]
  - HEADACHE [None]
  - PNEUMONIA [None]
  - DIZZINESS [None]
  - BRADYCARDIA [None]
  - ATRIAL FIBRILLATION [None]
  - JAW OPERATION [None]
  - CEREBRAL MICROANGIOPATHY [None]
  - TARDIVE DYSKINESIA [None]
  - ECONOMIC PROBLEM [None]
  - FALL [None]
  - HYPERTENSION [None]
  - SYNCOPE [None]
  - CEREBRAL ATROPHY [None]
  - CEREBRAL ISCHAEMIA [None]
  - MOBILITY DECREASED [None]
  - MEMORY IMPAIRMENT [None]
  - PARKINSON'S DISEASE [None]
  - SPONDYLOLISTHESIS [None]
  - HYPERHIDROSIS [None]
  - OSTEOARTHRITIS [None]
  - HYPOAESTHESIA [None]
  - DYSPHAGIA [None]
  - EMOTIONAL DISORDER [None]
  - INJURY [None]
  - POLYNEUROPATHY [None]
  - PARAESTHESIA [None]
  - CHRONIC OBSTRUCTIVE PULMONARY DISEASE [None]
  - ANGINA PECTORIS [None]
  - INTERVERTEBRAL DISC DISORDER [None]
  - EXTRAPYRAMIDAL DISORDER [None]
  - TREMOR [None]
  - FEELING ABNORMAL [None]
  - HYPOTENSION [None]
  - HEAD INJURY [None]
  - BURNING SENSATION [None]
  - TRANSIENT ISCHAEMIC ATTACK [None]
  - CEREBRAL INFARCTION [None]
  - LUMBAR RADICULOPATHY [None]
  - TONSILLECTOMY [None]
  - APPENDICECTOMY [None]
